FAERS Safety Report 24140567 (Version 2)
Quarter: 2024Q4

REPORT INFORMATION
  Report Type: Spontaneous
  Country: AU (occurrence: AU)
  Receive Date: 20240726
  Receipt Date: 20241223
  Transmission Date: 20250115
  Serious: Yes (Other)
  Sender: NOVARTIS
  Company Number: AU-ASPEN-AUS2024AU003716

PATIENT
  Age: 85 Year
  Sex: Male

DRUGS (10)
  1. MYCOPHENOLATE MOFETIL [Suspect]
     Active Substance: MYCOPHENOLATE MOFETIL
     Indication: Chronic actinic dermatitis
     Dosage: 2 UNK INTERVAL: 1 DAY ((1G TWICE DAILY FOR 2YEARS))
     Route: 065
  2. MYCOPHENOLATE MOFETIL [Suspect]
     Active Substance: MYCOPHENOLATE MOFETIL
     Dosage: 2 G, QD
     Route: 065
  3. AZATHIOPRINE [Suspect]
     Active Substance: AZATHIOPRINE
     Indication: Chronic actinic dermatitis
     Dosage: 100 MG, QD
     Route: 065
  4. CYCLOSPORINE [Suspect]
     Active Substance: CYCLOSPORINE
     Indication: Chronic actinic dermatitis
     Dosage: 100 MG, BID
     Route: 065
  5. METHOTREXATE [Suspect]
     Active Substance: METHOTREXATE
     Indication: Chronic actinic dermatitis
     Dosage: (WEEKLY FOR 1 YEAR)
     Route: 065
  6. METHOTREXATE [Suspect]
     Active Substance: METHOTREXATE
     Dosage: 10 MG, QW
     Route: 065
  7. BETAMETHASONE [Suspect]
     Active Substance: BETAMETHASONE
     Indication: Chronic actinic dermatitis
     Dosage: UNK
     Route: 065
  8. PREDNISOLONE [Suspect]
     Active Substance: PREDNISOLONE
     Indication: Chronic actinic dermatitis
     Dosage: UNK
     Route: 065
  9. DUPILUMAB [Concomitant]
     Active Substance: DUPILUMAB
     Indication: Chronic actinic dermatitis
     Dosage: 600 MG,(EVERY 2 WEEKS)
     Route: 065
  10. DUPILUMAB [Concomitant]
     Active Substance: DUPILUMAB
     Dosage: 300 MG (EVERY 2 WEEKS)
     Route: 065

REACTIONS (3)
  - Hepatotoxicity [Unknown]
  - Drug ineffective [Unknown]
  - Off label use [Unknown]
